FAERS Safety Report 17291990 (Version 1)
Quarter: 2020Q1

REPORT INFORMATION
  Report Type: Spontaneous
  Country: US (occurrence: US)
  Receive Date: 20191231
  Receipt Date: 20191231
  Transmission Date: 20200409
  Serious: Yes (Hospitalization)
  Sender: FDA-Public Use
  Company Number: None

PATIENT
  Age: 53 Year
  Sex: Female

DRUGS (4)
  1. OXYCODONE [Concomitant]
     Active Substance: OXYCODONE
  2. GRALISE [Concomitant]
     Active Substance: GABAPENTIN
  3. AFINITOR [Suspect]
     Active Substance: EVEROLIMUS
     Indication: MALIGNANT CONNECTIVE TISSUE NEOPLASM
     Route: 048
  4. AFINITOR [Suspect]
     Active Substance: EVEROLIMUS
     Indication: SOFT TISSUE SARCOMA
     Route: 048

REACTIONS (1)
  - Hernia repair [None]

NARRATIVE: CASE EVENT DATE: 20191226
